FAERS Safety Report 21083792 (Version 1)
Quarter: 2022Q3

REPORT INFORMATION
  Report Type: Spontaneous
  Country: US (occurrence: None)
  Receive Date: 20220714
  Receipt Date: 20220714
  Transmission Date: 20221027
  Serious: Yes (Hospitalization)
  Sender: FDA-Public Use
  Company Number: None

PATIENT
  Age: 85 Year
  Sex: Male
  Weight: 109.27 kg

DRUGS (17)
  1. PREDNISONE [Suspect]
     Active Substance: PREDNISONE
     Indication: Prostate cancer
     Dosage: 5MG DAILY ORAL?
     Route: 048
  2. ABIRATERONE [Suspect]
     Active Substance: ABIRATERONE
     Indication: Prostate cancer
     Dosage: 1000MG DAILY ORAL?
     Route: 048
  3. AMLODIPINE BESYLATE [Concomitant]
  4. ASPIRIN EC ADULT LOW STRENGTH [Concomitant]
  5. ATORVASTATIN CALCIUM [Concomitant]
  6. CALCIUM\CHOLECALCIFEROL [Concomitant]
     Active Substance: CALCIUM\CHOLECALCIFEROL
  7. COAL TAR [Concomitant]
     Active Substance: COAL TAR
  8. FUROSEMIDE [Concomitant]
     Active Substance: FUROSEMIDE
  9. LOSARTAN POTASSIUM [Concomitant]
  10. MELOXICAM [Concomitant]
     Active Substance: MELOXICAM
  11. METFORMIN HCL [Concomitant]
  12. METOPROLOL SUCCINATE [Concomitant]
     Active Substance: METOPROLOL SUCCINATE
  13. METOPROLOL TARTRATE [Concomitant]
  14. MULTIVITAMIN ADULT [Concomitant]
  15. NIACIN [Concomitant]
     Active Substance: NIACIN
  16. OXYBUTYNIN CHLORIDE [Concomitant]
     Active Substance: OXYBUTYNIN CHLORIDE
  17. PRAVASTATIN SODIUM [Concomitant]

REACTIONS (1)
  - Hospitalisation [None]
